FAERS Safety Report 20242436 (Version 1)
Quarter: 2021Q4

REPORT INFORMATION
  Report Type: Spontaneous
  Country: US (occurrence: US)
  Receive Date: 20211228
  Receipt Date: 20211228
  Transmission Date: 20220303
  Serious: Yes (Other)
  Sender: FDA-Public Use
  Company Number: US-COOPERSURGICAL, INC.-US-2021CPS000205

PATIENT
  Age: 39 Year
  Sex: Female
  Weight: 84 kg

DRUGS (1)
  1. PARAGARD T 380A [Suspect]
     Active Substance: COPPER
     Indication: Contraception
     Dosage: UNK
     Route: 015
     Dates: start: 20160219, end: 20210119

REACTIONS (3)
  - Device breakage [Recovered/Resolved]
  - Back pain [Recovered/Resolved]
  - Device material issue [Recovered/Resolved]

NARRATIVE: CASE EVENT DATE: 20210119
